FAERS Safety Report 22517308 (Version 1)
Quarter: 2023Q2

REPORT INFORMATION
  Report Type: Spontaneous
  Country: US (occurrence: None)
  Receive Date: 20230603
  Receipt Date: 20230603
  Transmission Date: 20230721
  Serious: No
  Sender: FDA-Public Use
  Company Number: 2023A119688

PATIENT
  Sex: Female

DRUGS (2)
  1. LYNPARZA [Suspect]
     Active Substance: OLAPARIB
     Route: 048
  2. OMEPRAZOLE [Concomitant]
     Active Substance: OMEPRAZOLE

REACTIONS (11)
  - Multiple allergies [Unknown]
  - Sneezing [Unknown]
  - Rhinorrhoea [Unknown]
  - Back pain [Unknown]
  - Hypoaesthesia [Unknown]
  - Depressed mood [Unknown]
  - Emotional disorder [Unknown]
  - Endometrial thickening [Unknown]
  - Paraesthesia [Unknown]
  - Headache [Unknown]
  - Dyspepsia [Unknown]
